FAERS Safety Report 10144154 (Version 1)
Quarter: 2014Q2

REPORT INFORMATION
  Report Type: Spontaneous
  Country: US (occurrence: US)
  Receive Date: 20140430
  Receipt Date: 20140430
  Transmission Date: 20141212
  Serious: No
  Sender: FDA-Public Use
  Company Number: US-009507513-1404USA010329

PATIENT
  Age: 59 Year
  Sex: Female

DRUGS (10)
  1. JANUMET XR [Suspect]
     Indication: TYPE 2 DIABETES MELLITUS
     Dosage: UNK
     Route: 048
     Dates: start: 20140404
  2. LANTUS [Concomitant]
  3. CARVEDILOL [Concomitant]
  4. LISINOPRIL [Concomitant]
  5. GABAPENTIN [Concomitant]
  6. ASPIRIN [Concomitant]
  7. CRESTOR [Concomitant]
  8. VITAMIN D (UNSPECIFIED) [Concomitant]
  9. ACYCLOVIR [Concomitant]
  10. NIFEDICAL [Concomitant]

REACTIONS (2)
  - Pain in extremity [Unknown]
  - Back pain [Unknown]
